FAERS Safety Report 14964151 (Version 2)
Quarter: 2018Q2

REPORT INFORMATION
  Report Type: Spontaneous
  Country: US (occurrence: US)
  Receive Date: 20180601
  Receipt Date: 20180619
  Transmission Date: 20180711
  Serious: Yes (Hospitalization, Other)
  Sender: FDA-Public Use
  Company Number: US-GLAXOSMITHKLINE-US2018097691

PATIENT
  Age: 62 Year
  Sex: Female

DRUGS (3)
  1. FOLIC ACID. [Concomitant]
     Active Substance: FOLIC ACID
  2. LAMICTAL [Suspect]
     Active Substance: LAMOTRIGINE
     Indication: SEIZURE
     Dosage: 100 MG, UNK
  3. LAMICTAL [Suspect]
     Active Substance: LAMOTRIGINE
     Indication: SEIZURE
     Route: 048

REACTIONS (12)
  - Head injury [Recovering/Resolving]
  - Dysarthria [Unknown]
  - Nasal injury [Recovering/Resolving]
  - Hemiparesis [Unknown]
  - Asthenia [Unknown]
  - Hypotension [Unknown]
  - Cerebrovascular accident [Unknown]
  - Aphasia [Unknown]
  - Drug ineffective [Unknown]
  - Amnesia [Not Recovered/Not Resolved]
  - Seizure [Unknown]
  - Fall [Unknown]

NARRATIVE: CASE EVENT DATE: 201805
